FAERS Safety Report 24755214 (Version 1)
Quarter: 2024Q4

REPORT INFORMATION
  Report Type: Spontaneous
  Country: US (occurrence: US)
  Receive Date: 20241219
  Receipt Date: 20241219
  Transmission Date: 20250115
  Serious: Yes (Hospitalization)
  Sender: ANI
  Company Number: US-ANIPHARMA-2024-US-066043

PATIENT
  Sex: Female

DRUGS (8)
  1. CORTICOTROPIN [Suspect]
     Active Substance: CORTICOTROPIN
     Indication: Multiple sclerosis
     Dosage: INJECT 80 UNITS (1 ML) INTRAMUSCULARLY ONCE DAILY FOR 14 DAYS, DISCARD OPEN VIAL 28 DAYS AFTER 1ST U
  2. MAGNESIUM OXIDE [Concomitant]
     Active Substance: MAGNESIUM OXIDE
  3. MODAFINIL [Concomitant]
     Active Substance: MODAFINIL
  4. PRIMIDONE [Concomitant]
     Active Substance: PRIMIDONE
  5. ACETAMINOPHEN [Concomitant]
     Active Substance: ACETAMINOPHEN
  6. DALFAMPRIDINE [Concomitant]
     Active Substance: DALFAMPRIDINE
  7. DIPHENOXYLATE HYDROCHLORIDE [Concomitant]
     Active Substance: DIPHENOXYLATE HYDROCHLORIDE
  8. VITAMIN D3 [Concomitant]
     Active Substance: CHOLECALCIFEROL

REACTIONS (2)
  - Hospitalisation [Unknown]
  - Product administration interrupted [Unknown]
